FAERS Safety Report 8262843-6 (Version None)
Quarter: 2012Q2

REPORT INFORMATION
  Report Type: 
  Country: None (occurrence: None)
  Receive Date: 20120405
  Receipt Date: 20120330
  Transmission Date: 20120825
  Serious: Yes (Hospitalization)
  Sender: FDA-Public Use
  Company Number: US-GLAXOSMITHKLINE-A0873288A

PATIENT
  Sex: Male
  Weight: 117.3 kg

DRUGS (3)
  1. GLUCOPHAGE [Concomitant]
  2. GLUCOTROL [Concomitant]
  3. AVANDIA [Suspect]
     Indication: DIABETES MELLITUS
     Dosage: 4MG PER DAY
     Route: 048
     Dates: start: 20000201, end: 20090304

REACTIONS (1)
  - CARDIAC FAILURE CONGESTIVE [None]
